FAERS Safety Report 11141877 (Version 1)
Quarter: 2015Q2

REPORT INFORMATION
  Report Type: Spontaneous
  Country: US (occurrence: US)
  Receive Date: 20150527
  Receipt Date: 20150527
  Transmission Date: 20150821
  Serious: Yes (Hospitalization, Other)
  Sender: FDA-Public Use
  Company Number: US-GLAXOSMITHKLINE-US2015GSK071134

PATIENT
  Age: 53 Year
  Sex: Female

DRUGS (1)
  1. ALLI [Suspect]
     Active Substance: ORLISTAT
     Indication: PRODUCT USED FOR UNKNOWN INDICATION
     Dosage: 1 TWICE A DAY PO
     Route: 048

REACTIONS (6)
  - Gastric disorder [Unknown]
  - Hypophagia [Unknown]
  - Discomfort [Unknown]
  - Hepatic pain [Unknown]
  - Hepatic cyst [Unknown]
  - Vomiting [Unknown]
